FAERS Safety Report 6531777-7 (Version None)
Quarter: 2010Q1

REPORT INFORMATION
  Report Type: 
  Country: None (occurrence: None)
  Receive Date: 20100108
  Receipt Date: 20100106
  Transmission Date: 20100710
  Serious: Yes (Other)
  Sender: FDA-Public Use
  Company Number: A0838066A

PATIENT
  Sex: Female

DRUGS (1)
  1. ADVAIR DISKUS 100/50 [Suspect]
     Indication: DRUG USE FOR UNKNOWN INDICATION
     Route: 055
     Dates: start: 20020101

REACTIONS (7)
  - DYSPHONIA [None]
  - LARYNGEAL INFLAMMATION [None]
  - LARYNGEAL OEDEMA [None]
  - LARYNGITIS [None]
  - ORAL FUNGAL INFECTION [None]
  - PHARYNGEAL INFLAMMATION [None]
  - PHARYNGEAL OEDEMA [None]
